FAERS Safety Report 12502416 (Version 3)
Quarter: 2016Q3

REPORT INFORMATION
  Report Type: Report from Study
  Country: US (occurrence: US)
  Receive Date: 20160627
  Receipt Date: 20160914
  Transmission Date: 20161109
  Serious: Yes (Hospitalization, Other)
  Sender: FDA-Public Use
  Company Number: US-GILEAD-2016-0219926

PATIENT
  Age: 84 Year
  Sex: Female

DRUGS (2)
  1. IDELALISIB [Suspect]
     Active Substance: IDELALISIB
     Indication: SKIN CANCER
     Dosage: 200 MG, QD
     Route: 048
     Dates: start: 20160206
  2. IDELALISIB [Suspect]
     Active Substance: IDELALISIB
     Indication: CHRONIC LYMPHOCYTIC LEUKAEMIA

REACTIONS (5)
  - Lower limb fracture [Unknown]
  - Hip fracture [Unknown]
  - Fall [Unknown]
  - Kidney infection [Recovering/Resolving]
  - White blood cell count decreased [Recovering/Resolving]
